FAERS Safety Report 13617821 (Version 1)
Quarter: 2017Q2

REPORT INFORMATION
  Report Type: Spontaneous
  Country: RO (occurrence: RO)
  Receive Date: 20170606
  Receipt Date: 20170606
  Transmission Date: 20170830
  Serious: Yes (Life-Threatening, Hospitalization)
  Sender: FDA-Public Use
  Company Number: RO-NORTH CREEK PHARMACEUTICALS LLC-2017VTS00630

PATIENT
  Age: 38 Year
  Sex: Female

DRUGS (1)
  1. DAPSONE. [Suspect]
     Active Substance: DAPSONE
     Indication: WEBER-CHRISTIAN DISEASE
     Dosage: 100 MG, 1X/DAY
     Route: 065

REACTIONS (2)
  - Methaemoglobinaemia [Recovered/Resolved]
  - Respiratory failure [Recovered/Resolved]
